FAERS Safety Report 8205083-9 (Version None)
Quarter: 2012Q1

REPORT INFORMATION
  Report Type: 
  Country: None (occurrence: None)
  Receive Date: 20120313
  Receipt Date: 20120229
  Transmission Date: 20120608
  Serious: Yes (Other)
  Sender: FDA-Public Use
  Company Number: AU-ROCHE-1044549

PATIENT
  Sex: Female
  Weight: 64 kg

DRUGS (2)
  1. TRASTUZUMAB [Suspect]
     Indication: BREAST CANCER
     Route: 042
     Dates: start: 20120120
  2. PACLITAXEL [Suspect]
     Indication: BREAST CANCER
     Route: 042
     Dates: start: 20120120

REACTIONS (7)
  - PHOTOPSIA [None]
  - HYPERTENSION [None]
  - FEELING ABNORMAL [None]
  - TACHYCARDIA [None]
  - FLUSHING [None]
  - NAUSEA [None]
  - BACK PAIN [None]
